FAERS Safety Report 17128290 (Version 1)
Quarter: 2019Q4

REPORT INFORMATION
  Report Type: Spontaneous
  Country: US (occurrence: US)
  Receive Date: 20191209
  Receipt Date: 20191209
  Transmission Date: 20200122
  Serious: No
  Sender: FDA-Public Use
  Company Number: US-UCBSA-2017006241

PATIENT
  Age: 28 Year
  Sex: Female
  Weight: 61 kg

DRUGS (5)
  1. OMEPRAZOLE. [Concomitant]
     Active Substance: OMEPRAZOLE
     Indication: GASTROOESOPHAGEAL REFLUX DISEASE
     Dosage: 20 MG, ONCE DAILY (QD)
     Dates: start: 201611, end: 201702
  2. VITRON C [Concomitant]
     Active Substance: ASCORBIC ACID\IRON
     Indication: MINERAL SUPPLEMENTATION
     Dosage: UNK
     Dates: start: 2016
  3. CITRICAL [Concomitant]
     Active Substance: CALCIUM CITRATE
     Indication: SUPPLEMENTATION THERAPY
     Dosage: UNK
  4. CIMZIA [Suspect]
     Active Substance: CERTOLIZUMAB PEGOL
     Indication: CROHN^S DISEASE
     Dosage: 400 MG, EV 2 WEEKS(QOW), STARTED 5 YEARS AGO
  5. PRENATAL VITAMINS [Concomitant]
     Active Substance: VITAMINS
     Indication: PRODUCT USED FOR UNKNOWN INDICATION
     Dosage: UNK
     Dates: start: 201605

REACTIONS (2)
  - Maternal exposure during breast feeding [Unknown]
  - Maternal exposure during pregnancy [Unknown]

NARRATIVE: CASE EVENT DATE: 20160505
